FAERS Safety Report 9555429 (Version 1)
Quarter: 2013Q3

REPORT INFORMATION
  Report Type: Spontaneous
  Country: US (occurrence: None)
  Receive Date: 20130925
  Receipt Date: 20130925
  Transmission Date: 20140515
  Serious: Yes (Other)
  Sender: FDA-Public Use
  Company Number: None

PATIENT
  Age: 72 Year
  Sex: Male
  Weight: 132.45 kg

DRUGS (3)
  1. DILTIAZEM HCL INJECTION [Suspect]
     Indication: TACHYCARDIA
     Route: 042
     Dates: start: 20130825, end: 20130826
  2. ASPIRIN [Concomitant]
  3. METOPROLOL TARTRATE [Concomitant]

REACTIONS (1)
  - Drug ineffective [None]
